FAERS Safety Report 6906903-8 (Version None)
Quarter: 2010Q3

REPORT INFORMATION
  Report Type: 
  Country: None (occurrence: None)
  Receive Date: 20100804
  Receipt Date: 20100728
  Transmission Date: 20110219
  Serious: Yes (Life-Threatening, Hospitalization)
  Sender: FDA-Public Use
  Company Number: DE-ELI_LILLY_AND_COMPANY-DE201005004367

PATIENT
  Sex: Female

DRUGS (8)
  1. BYETTA [Suspect]
     Indication: TYPE 2 DIABETES MELLITUS
     Dosage: 5 UG, UNKNOWN
     Route: 058
     Dates: start: 20100112, end: 20100211
  2. BYETTA [Suspect]
     Dosage: 10 UG, UNK
     Route: 058
     Dates: start: 20100212, end: 20100310
  3. METFORMIN HCL [Concomitant]
     Dosage: UNK, UNK
  4. METOPROLOL SUCCINATE [Concomitant]
     Dosage: UNK, 2/D
  5. AMITRIPTYLINE HCL [Concomitant]
     Dosage: 50 MG, 2/D
  6. LEVOTHYROXINE SODIUM [Concomitant]
     Dosage: 75 UG, DAILY (1/D)
     Route: 065
  7. PANTOZOL [Concomitant]
     Dosage: 40 MG, DAILY (1/D)
  8. TOREM [Concomitant]
     Dosage: 20 MG, DAILY (1/D)

REACTIONS (3)
  - PANCREATITIS ACUTE [None]
  - RENAL FAILURE ACUTE [None]
  - URTICARIA [None]
